FAERS Safety Report 18165897 (Version 1)
Quarter: 2020Q3

REPORT INFORMATION
  Report Type: Spontaneous
  Country: US (occurrence: US)
  Receive Date: 20200818
  Receipt Date: 20200818
  Transmission Date: 20201103
  Serious: No
  Sender: FDA-Public Use
  Company Number: US-OTSUKA-2018_023555

PATIENT
  Sex: Female

DRUGS (3)
  1. ABILIFY [Suspect]
     Active Substance: ARIPIPRAZOLE
     Indication: MAJOR DEPRESSION
     Dosage: 5 MG, QD
     Route: 065
     Dates: start: 20130124, end: 20161120
  2. ABILIFY [Suspect]
     Active Substance: ARIPIPRAZOLE
     Indication: POST-TRAUMATIC STRESS DISORDER
  3. ARIPIPRAZOLE. [Concomitant]
     Active Substance: ARIPIPRAZOLE
     Indication: PRODUCT USED FOR UNKNOWN INDICATION
     Dosage: UNK
     Route: 065
     Dates: start: 20150704, end: 20161120

REACTIONS (19)
  - Trichotillomania [Recovered/Resolved]
  - Compulsive hoarding [Recovered/Resolved]
  - Restlessness [Unknown]
  - Mental disorder [Unknown]
  - Economic problem [Unknown]
  - Product used for unknown indication [Unknown]
  - Neuropsychiatric symptoms [Unknown]
  - Body temperature increased [Unknown]
  - Weight increased [Unknown]
  - Condition aggravated [Recovered/Resolved]
  - Compulsive shopping [Recovered/Resolved]
  - Dermatillomania [Recovered/Resolved]
  - Gambling disorder [Recovered/Resolved]
  - Hyperhidrosis [Unknown]
  - Emotional distress [Unknown]
  - Blood triglycerides increased [Unknown]
  - Diabetes mellitus [Unknown]
  - Injury [Unknown]
  - Eating disorder [Unknown]

NARRATIVE: CASE EVENT DATE: 20130124
